FAERS Safety Report 25237885 (Version 2)
Quarter: 2025Q2

REPORT INFORMATION
  Report Type: Spontaneous
  Country: JP (occurrence: JP)
  Receive Date: 20250425
  Receipt Date: 20250612
  Transmission Date: 20250717
  Serious: Yes (Hospitalization, Other)
  Sender: SUNOVION
  Company Number: JP-SMPA-2025SPA005047

PATIENT

DRUGS (3)
  1. RELUGOLIX [Suspect]
     Active Substance: RELUGOLIX
     Indication: Uterine leiomyoma
     Route: 048
     Dates: start: 202309
  2. RELUGOLIX [Suspect]
     Active Substance: RELUGOLIX
     Route: 048
     Dates: end: 20250111
  3. RELUGOLIX [Suspect]
     Active Substance: RELUGOLIX
     Route: 048
     Dates: start: 20250131

REACTIONS (1)
  - Diverticulitis [Recovered/Resolved]

NARRATIVE: CASE EVENT DATE: 20250111
